FAERS Safety Report 6968372-1 (Version None)
Quarter: 2010Q3

REPORT INFORMATION
  Report Type: 
  Country: None (occurrence: None)
  Receive Date: 20100903
  Receipt Date: 20100903
  Transmission Date: 20110219
  Serious: Yes (Hospitalization, Disabling)
  Sender: FDA-Public Use
  Company Number: None

PATIENT
  Age: 74 Year
  Sex: Female
  Weight: 115.4 kg

DRUGS (2)
  1. VANCOMYCIN [Suspect]
     Indication: HIP ARTHROPLASTY
     Dosage: 1 GRAM Q12HRS IV
     Route: 042
     Dates: start: 20100805, end: 20100810
  2. VANCOMYCIN [Suspect]
     Indication: POSTOPERATIVE WOUND INFECTION
     Dosage: 1 GRAM Q12HRS IV
     Route: 042
     Dates: start: 20100805, end: 20100810

REACTIONS (2)
  - DERMATITIS BULLOUS [None]
  - SKIN EXFOLIATION [None]
